FAERS Safety Report 7337681-9 (Version None)
Quarter: 2011Q1

REPORT INFORMATION
  Report Type: 
  Country: None (occurrence: None)
  Receive Date: 20110308
  Receipt Date: 20110301
  Transmission Date: 20110831
  Serious: Yes (Hospitalization)
  Sender: FDA-Public Use
  Company Number: BE-ABBOTT-11P-013-0708184-00

PATIENT
  Sex: Female

DRUGS (3)
  1. HUMIRA [Suspect]
     Indication: ANKYLOSING SPONDYLITIS
     Dates: start: 20090921, end: 20100701
  2. HUMIRA [Suspect]
     Dates: start: 20100826, end: 20101004
  3. HUMIRA [Suspect]
     Dates: start: 20101004

REACTIONS (1)
  - CYSTOCELE [None]
